FAERS Safety Report 8372621-5 (Version None)
Quarter: 2012Q2

REPORT INFORMATION
  Report Type: 
  Country: None (occurrence: None)
  Receive Date: 20120521
  Receipt Date: 20120516
  Transmission Date: 20120825
  Serious: Yes (Other)
  Sender: FDA-Public Use
  Company Number: PHEH2012US010310

PATIENT
  Sex: Female

DRUGS (2)
  1. RECLAST [Suspect]
     Route: 042
     Dates: start: 19990101, end: 20110601
  2. FOSAMAX [Suspect]
     Dates: start: 19990101, end: 20110601

REACTIONS (9)
  - OSTEOGENESIS IMPERFECTA [None]
  - QUALITY OF LIFE DECREASED [None]
  - PAIN [None]
  - INJURY [None]
  - EMOTIONAL DISTRESS [None]
  - MENTAL DISORDER [None]
  - MULTIPLE FRACTURES [None]
  - STRESS FRACTURE [None]
  - BONE DISORDER [None]
